FAERS Safety Report 25903447 (Version 3)
Quarter: 2025Q4

REPORT INFORMATION
  Report Type: Report from Study
  Country: EU (occurrence: EU)
  Receive Date: 20251009
  Receipt Date: 20251225
  Transmission Date: 20260117
  Serious: Yes (Other)
  Sender: JOHNSON AND JOHNSON
  Company Number: EU-JNJFOC-20250903433

PATIENT
  Age: 66 Year
  Sex: Male

DRUGS (20)
  1. CILTACABTAGENE AUTOLEUCEL [Suspect]
     Active Substance: CILTACABTAGENE AUTOLEUCEL
     Indication: Plasma cell myeloma
     Dosage: DOSE:0.7 X10^8 CAR-POSITIVE VIABLE T CELLS/KG,?THERAPY END DATE: 06-AUG-2025
  2. ACYCLOVIR [Concomitant]
     Active Substance: ACYCLOVIR
     Indication: Antiviral prophylaxis
     Route: 048
     Dates: start: 20250806
  3. AMPHOTERICIN B [Concomitant]
     Active Substance: AMPHOTERICIN B
     Indication: Antifungal prophylaxis
     Route: 048
     Dates: start: 20250806, end: 20250821
  4. SULFAMETHOXAZOLE\TRIMETHOPRIM [Concomitant]
     Active Substance: SULFAMETHOXAZOLE\TRIMETHOPRIM
     Indication: Infection prophylaxis
     Route: 048
     Dates: start: 20250806
  5. PANTOPRAZOLE SODIUM [Concomitant]
     Active Substance: PANTOPRAZOLE SODIUM
     Indication: Prophylaxis of nausea and vomiting
     Route: 048
     Dates: start: 20250806
  6. CANDESARTAN [Concomitant]
     Active Substance: CANDESARTAN
     Indication: Hypertension
     Route: 048
     Dates: start: 20250806
  7. AMLODIPINE BESYLATE [Concomitant]
     Active Substance: AMLODIPINE BESYLATE
     Indication: Hypertension
     Route: 048
     Dates: start: 20250806
  8. ACETYLSALICYLACID [Concomitant]
     Indication: Thrombosis prophylaxis
     Route: 048
     Dates: start: 20250806, end: 20250826
  9. METOCLOPRAMIDE [Concomitant]
     Active Substance: METOCLOPRAMIDE
     Indication: Prophylaxis of nausea and vomiting
     Route: 048
     Dates: start: 20250806, end: 20250812
  10. POTASSIUM CHLORIDE [Concomitant]
     Active Substance: POTASSIUM CHLORIDE
     Indication: Mineral supplementation
     Dosage: DOSE- 2 CAPSULES
     Route: 048
     Dates: start: 20250806, end: 20250816
  11. POTASSIUM CHLORIDE [Concomitant]
     Active Substance: POTASSIUM CHLORIDE
     Dosage: DOSE- 2 CAPSULES
     Route: 048
     Dates: start: 20250817, end: 20250817
  12. INNOHEP [Concomitant]
     Active Substance: TINZAPARIN SODIUM
     Indication: Thrombosis prophylaxis
     Route: 058
     Dates: start: 20250806, end: 20250821
  13. FUROSEMIDE [Concomitant]
     Active Substance: FUROSEMIDE
     Indication: Oedema
     Route: 042
     Dates: start: 20250808, end: 20250808
  14. LASIX [Concomitant]
     Active Substance: FUROSEMIDE
     Indication: Oedema
     Route: 042
     Dates: start: 20250811, end: 20250812
  15. LASIX [Concomitant]
     Active Substance: FUROSEMIDE
     Route: 042
     Dates: start: 20250809, end: 20250809
  16. METOCLOPRAMIDE [Concomitant]
     Active Substance: METOCLOPRAMIDE
     Indication: Prophylaxis of nausea and vomiting
     Route: 048
     Dates: start: 20250813, end: 20250813
  17. CALCIUMGLUCONAT [Concomitant]
     Indication: Prophylaxis
     Dosage: 1 VIAL
     Route: 042
     Dates: start: 20250814, end: 20250814
  18. CALCIUMGLUCONAT [Concomitant]
     Dosage: 1 VIAL
     Route: 042
     Dates: start: 20250817, end: 20250817
  19. SIMVASTATIN [Concomitant]
     Active Substance: SIMVASTATIN
     Indication: Hypercholesterolaemia
     Route: 048
     Dates: start: 20250826
  20. TORSEMIDE [Concomitant]
     Active Substance: TORSEMIDE
     Indication: Oedema
     Route: 048
     Dates: start: 20250826

REACTIONS (6)
  - Cytokine release syndrome [Recovered/Resolved]
  - Hypogammaglobulinaemia [Not Recovered/Not Resolved]
  - Immune effector cell-associated haematotoxicity [Not Recovered/Not Resolved]
  - Decreased appetite [Recovered/Resolved]
  - Fatigue [Recovered/Resolved]
  - Folate deficiency [Not Recovered/Not Resolved]

NARRATIVE: CASE EVENT DATE: 20250813
